FAERS Safety Report 10648895 (Version 1)
Quarter: 2014Q4

REPORT INFORMATION
  Report Type: Spontaneous
  Country: JP (occurrence: None)
  Receive Date: 20141210
  Receipt Date: 20141210
  Transmission Date: 20150529
  Serious: Yes (Other)
  Sender: FDA-Public Use
  Company Number: 2014AJA00035

PATIENT
  Age: 29 Year
  Sex: Female

DRUGS (4)
  1. CLOBAZAM [Concomitant]
     Active Substance: CLOBAZAM
  2. PHENYTOIN. [Concomitant]
     Active Substance: PHENYTOIN
  3. LEVETIRACETAM. [Suspect]
     Active Substance: LEVETIRACETAM
     Indication: GENERALISED TONIC-CLONIC SEIZURE
     Dates: start: 201309, end: 2013
  4. SODIUM VALPROATE [Concomitant]
     Active Substance: VALPROATE SODIUM

REACTIONS (2)
  - Rhabdomyolysis [None]
  - Altered state of consciousness [None]

NARRATIVE: CASE EVENT DATE: 20140916
